FAERS Safety Report 9918932 (Version 1)
Quarter: 2014Q1

REPORT INFORMATION
  Report Type: Report from Study
  Country: DE (occurrence: DE)
  Receive Date: 20140224
  Receipt Date: 20140224
  Transmission Date: 20141002
  Serious: Yes (Other)
  Sender: FDA-Public Use
  Company Number: DE-UCBSA-113038

PATIENT
  Age: 54 Year
  Sex: Female

DRUGS (6)
  1. NEUPRO [Suspect]
     Indication: RESTLESS LEGS SYNDROME
     Route: 062
  2. TILIDIN [Concomitant]
     Indication: RESTLESS LEGS SYNDROME
     Dosage: 50/4 MG
     Route: 048
  3. SPASMOLYT [Concomitant]
     Indication: URINARY INCONTINENCE
     Route: 048
  4. KARVEZIDE [Concomitant]
     Indication: HYPERTENSION
     Dosage: 150/12,5 MG
     Route: 048
  5. ESTREVA [Concomitant]
     Indication: HORMONE REPLACEMENT THERAPY
     Dosage: 0.1%, EXTERNAL APPLICATION
  6. OEKOLP FORTE OVULA [Concomitant]
     Indication: HORMONE REPLACEMENT THERAPY
     Dosage: INTRA VAGINAL

REACTIONS (1)
  - Atrial fibrillation [Unknown]
